FAERS Safety Report 10369496 (Version 1)
Quarter: 2014Q3

REPORT INFORMATION
  Report Type: Spontaneous
  Country: US (occurrence: US)
  Receive Date: 20140807
  Receipt Date: 20140807
  Transmission Date: 20150326
  Serious: Yes (Hospitalization)
  Sender: FDA-Public Use
  Company Number: US-GILEAD-2014-0111090

PATIENT
  Age: 67 Year
  Sex: Male

DRUGS (17)
  1. PLAVIX [Concomitant]
     Active Substance: CLOPIDOGREL BISULFATE
  2. VENLAFAXINE [Concomitant]
     Active Substance: VENLAFAXINE HYDROCHLORIDE
  3. LIPITOR [Concomitant]
     Active Substance: ATORVASTATIN CALCIUM
  4. LETAIRIS [Suspect]
     Active Substance: AMBRISENTAN
     Indication: PULMONARY HYPERTENSION
     Dosage: 5 MG, QD
     Route: 065
     Dates: start: 20140707
  5. AZELASTINE [Concomitant]
     Active Substance: AZELASTINE
  6. COZAAR [Concomitant]
     Active Substance: LOSARTAN POTASSIUM
  7. FLUTICASONE [Concomitant]
     Active Substance: FLUTICASONE\FLUTICASONE PROPIONATE
  8. DALIRESP [Concomitant]
     Active Substance: ROFLUMILAST
  9. TUSSIN                             /00048001/ [Concomitant]
  10. LORATADINE. [Concomitant]
     Active Substance: LORATADINE
  11. NAPROSYN [Concomitant]
     Active Substance: NAPROXEN
  12. VENTOLIN [Concomitant]
     Active Substance: ALBUTEROL SULFATE
  13. ARAVA [Concomitant]
     Active Substance: LEFLUNOMIDE
  14. NORVASC [Concomitant]
     Active Substance: AMLODIPINE BESYLATE
  15. ANORO ELLIPTA                      /08468001/ [Concomitant]
  16. XANAX [Concomitant]
     Active Substance: ALPRAZOLAM
  17. MECLIZINE [Concomitant]
     Active Substance: MECLIZINE\MECLIZINE HYDROCHLORIDE

REACTIONS (2)
  - Dyspnoea [Recovered/Resolved]
  - Sinusitis [Recovered/Resolved]

NARRATIVE: CASE EVENT DATE: 20140730
